FAERS Safety Report 15315787 (Version 4)
Quarter: 2019Q4

REPORT INFORMATION
  Report Type: Report from Study
  Country: US (occurrence: US)
  Receive Date: 20180824
  Receipt Date: 20191213
  Transmission Date: 20200122
  Serious: Yes (Other)
  Sender: FDA-Public Use
  Company Number: PHHY2018US079584

PATIENT
  Sex: Female

DRUGS (4)
  1. COSENTYX [Suspect]
     Active Substance: SECUKINUMAB
     Dosage: 300 MG, QW
     Route: 058
     Dates: start: 201806, end: 20190928
  2. FLUOXETINE [Concomitant]
     Active Substance: FLUOXETINE HYDROCHLORIDE
     Indication: PRODUCT USED FOR UNKNOWN INDICATION
     Dosage: UNK
     Route: 065
  3. MELOXICAM. [Concomitant]
     Active Substance: MELOXICAM
     Indication: PRODUCT USED FOR UNKNOWN INDICATION
     Dosage: UNK
     Route: 065
  4. COSENTYX [Suspect]
     Active Substance: SECUKINUMAB
     Indication: PSORIASIS
     Dosage: 300 MG, QMO
     Route: 058
     Dates: start: 20180223

REACTIONS (15)
  - Immune system disorder [Unknown]
  - Injection site pain [Unknown]
  - Injection site haemorrhage [Unknown]
  - Ear infection [Unknown]
  - Fatigue [Unknown]
  - Injection site bruising [Unknown]
  - Ear pain [Unknown]
  - Sinusitis [Unknown]
  - Mood altered [Unknown]
  - Productive cough [Recovering/Resolving]
  - Diabetes mellitus [Recovering/Resolving]
  - Cough [Recovering/Resolving]
  - Hypersensitivity [Unknown]
  - Nasopharyngitis [Recovering/Resolving]
  - Depression [Recovering/Resolving]
